FAERS Safety Report 12227953 (Version 3)
Quarter: 2016Q2

REPORT INFORMATION
  Report Type: Spontaneous
  Country: TN (occurrence: TN)
  Receive Date: 20160401
  Receipt Date: 20160524
  Transmission Date: 20160815
  Serious: Yes (Other)
  Sender: FDA-Public Use
  Company Number: TN-BRISTOL-MYERS SQUIBB COMPANY-BMS-2016-022986

PATIENT
  Age: 50 Year

DRUGS (7)
  1. SORBITOL. [Suspect]
     Active Substance: SORBITOL
     Indication: IRRITABLE BOWEL SYNDROME
     Dosage: UNK
     Route: 065
     Dates: end: 20160127
  2. GLIBENCLAMIDE [Suspect]
     Active Substance: GLYBURIDE
     Indication: TYPE 2 DIABETES MELLITUS
     Dosage: 0.5 DF, BID
     Route: 065
  3. METFORMIN HYDROCHLORIDE. [Suspect]
     Active Substance: METFORMIN HYDROCHLORIDE
     Indication: PRODUCT USED FOR UNKNOWN INDICATION
     Dosage: 850 MG, TID
     Route: 065
  4. FAMODAR [Suspect]
     Active Substance: FAMOTIDINE
     Indication: PRODUCT USED FOR UNKNOWN INDICATION
     Dosage: 1 DF, QD
     Route: 065
  5. HYPOLIP                            /00499301/ [Concomitant]
     Indication: DYSLIPIDAEMIA
     Dosage: 1 DF, QD
     Route: 065
     Dates: start: 2011, end: 2015
  6. LACTULOSE ALMUS [Suspect]
     Active Substance: LACTULOSE
     Indication: IRRITABLE BOWEL SYNDROME
     Route: 065
  7. LOPRIL [Concomitant]
     Active Substance: LISINOPRIL
     Indication: HYPERTENSION
     Dosage: 1 DF, QD
     Route: 065

REACTIONS (5)
  - Liver function test abnormal [Unknown]
  - Hepatic steatosis [Unknown]
  - Hepatocellular injury [Unknown]
  - Obesity [Unknown]
  - Cholestasis [Unknown]
